FAERS Safety Report 19681840 (Version 6)
Quarter: 2021Q3

REPORT INFORMATION
  Report Type: Spontaneous
  Country: US (occurrence: US)
  Receive Date: 20210810
  Receipt Date: 20210830
  Transmission Date: 20211014
  Serious: Yes (Disabling, Other)
  Sender: FDA-Public Use
  Company Number: US-SA-2021SA257619

PATIENT
  Age: 59 Year
  Sex: Male

DRUGS (2)
  1. LANTUS SOLOSTAR [Suspect]
     Active Substance: INSULIN GLARGINE
     Indication: TYPE 1 DIABETES MELLITUS
     Dosage: 30 IU, QD
     Route: 065
  2. LANTUS SOLOSTAR [Suspect]
     Active Substance: INSULIN GLARGINE
     Dosage: PARTIAL DOSE, IT STOPS MID?DOSE
     Route: 065

REACTIONS (4)
  - Device operational issue [Recovered/Resolved]
  - Blindness [Recovering/Resolving]
  - Incorrect dose administered by device [Recovered/Resolved]
  - Blood glucose increased [Recovered/Resolved]
